FAERS Safety Report 19549897 (Version 4)
Quarter: 2022Q1

REPORT INFORMATION
  Report Type: Report from Study
  Country: CA (occurrence: CA)
  Receive Date: 20210714
  Receipt Date: 20220309
  Transmission Date: 20220423
  Serious: Yes (Other)
  Sender: FDA-Public Use
  Company Number: CA-JNJFOC-20210713803

PATIENT
  Age: 6 Decade
  Sex: Female

DRUGS (1)
  1. STELARA [Suspect]
     Active Substance: USTEKINUMAB
     Indication: Crohn^s disease
     Route: 058

REACTIONS (5)
  - Staphylococcal infection [Not Recovered/Not Resolved]
  - Weight decreased [Unknown]
  - Skin abrasion [Unknown]
  - Contusion [Unknown]
  - Furuncle [Unknown]

NARRATIVE: CASE EVENT DATE: 20210101
